FAERS Safety Report 7389667-6 (Version None)
Quarter: 2011Q2

REPORT INFORMATION
  Report Type: 
  Country: None (occurrence: None)
  Receive Date: 20110401
  Receipt Date: 20110322
  Transmission Date: 20111010
  Serious: Yes (Hospitalization)
  Sender: FDA-Public Use
  Company Number: GB-AMGEN-GBRCT2011009828

PATIENT
  Age: 64 Year
  Sex: Male

DRUGS (8)
  1. OXALIPLATIN [Concomitant]
     Dosage: UNK
     Dates: start: 20110210
  2. CAPECITABINE [Concomitant]
     Dosage: UNK
     Dates: start: 20110210
  3. PROCHLORPERAZINE MALEATE [Concomitant]
  4. PANITUMUMAB [Suspect]
     Indication: GASTROOESOPHAGEAL CANCER
     Dosage: UNK
     Dates: start: 20110210
  5. EPIRUBICIN [Concomitant]
     Dosage: UNK
     Dates: start: 20110210
  6. ZAPAIN [Concomitant]
  7. MORPHINE SULFATE [Concomitant]
     Dosage: 10 MG, UNK
  8. GABAPENTIN [Concomitant]
     Dosage: 100 MG, UNK

REACTIONS (2)
  - VOMITING [None]
  - CHEST PAIN [None]
